FAERS Safety Report 21658858 (Version 1)
Quarter: 2022Q4

REPORT INFORMATION
  Report Type: Report from Study
  Country: IT (occurrence: IT)
  Receive Date: 20221129
  Receipt Date: 20221129
  Transmission Date: 20230113
  Serious: Yes (Life-Threatening, Other)
  Sender: FDA-Public Use
  Company Number: IT-MYLANLABS-2022M1133335

PATIENT
  Age: 58 Year
  Sex: Female

DRUGS (3)
  1. PACLITAXEL [Suspect]
     Active Substance: PACLITAXEL
     Indication: Neoadjuvant therapy
     Dosage: 142.4 MILLIGRAM, QW (142.4 MG/DAY))
     Route: 042
     Dates: start: 20220831, end: 20221103
  2. PEMBROLIZUMAB [Suspect]
     Active Substance: PEMBROLIZUMAB
     Indication: Neoadjuvant therapy
     Dosage: 200 MILLIGRAM, Q3W (200 MG/DAY)
     Route: 042
     Dates: start: 20220831, end: 20221027
  3. CARBOPLATIN [Suspect]
     Active Substance: CARBOPLATIN
     Indication: Neoadjuvant therapy
     Dosage: 200 MILLIGRAM, QW (200 MG/DAY)
     Route: 042
     Dates: start: 20220831, end: 20221103

REACTIONS (4)
  - Hypersensitivity [Recovered/Resolved]
  - Paraesthesia [Unknown]
  - Chest pain [Unknown]
  - Back pain [Unknown]

NARRATIVE: CASE EVENT DATE: 20221027
